FAERS Safety Report 13806046 (Version 1)
Quarter: 2017Q3

REPORT INFORMATION
  Report Type: Spontaneous
  Country: US (occurrence: US)
  Receive Date: 20170728
  Receipt Date: 20170728
  Transmission Date: 20171127
  Serious: No
  Sender: FDA-Public Use
  Company Number: US-GLAXOSMITHKLINE-US2017113664

PATIENT
  Age: 84 Year
  Sex: Female

DRUGS (1)
  1. VOLTAREN [Suspect]
     Active Substance: DICLOFENAC SODIUM
     Indication: SYNOVIAL CYST
     Dosage: UNK
     Dates: start: 20170721, end: 20170721

REACTIONS (2)
  - Drug administered at inappropriate site [Unknown]
  - Off label use [Unknown]
